FAERS Safety Report 5497190-9 (Version None)
Quarter: 2007Q4

REPORT INFORMATION
  Report Type: 
  Country: None (occurrence: None)
  Receive Date: 20071025
  Receipt Date: 20060905
  Transmission Date: 20080405
  Serious: No
  Sender: FDA-Public Use
  Company Number: A0619141A

PATIENT
  Sex: Female

DRUGS (2)
  1. ADVAIR DISKUS 100/50 [Suspect]
     Indication: EMPHYSEMA
     Route: 055
     Dates: start: 20060801
  2. SPIRIVA [Concomitant]
     Indication: EMPHYSEMA
     Dates: start: 20060801

REACTIONS (2)
  - CANDIDIASIS [None]
  - DYSPHONIA [None]
